FAERS Safety Report 15276795 (Version 1)
Quarter: 2018Q3

REPORT INFORMATION
  Report Type: Spontaneous
  Country: US (occurrence: US)
  Receive Date: 20180729
  Receipt Date: 20180729
  Transmission Date: 20181010
  Serious: Yes (Disabling, Other)
  Sender: FDA-Public Use
  Company Number: None

PATIENT
  Age: 26 Year
  Sex: Female

DRUGS (1)
  1. MIRENA [Suspect]
     Active Substance: LEVONORGESTREL
     Dates: start: 20131114, end: 20150824

REACTIONS (4)
  - Fungal infection [None]
  - Vaginal haemorrhage [None]
  - Urinary tract infection [None]
  - Bacterial vaginosis [None]

NARRATIVE: CASE EVENT DATE: 20150701
